FAERS Safety Report 9585999 (Version 1)
Quarter: 2013Q4

REPORT INFORMATION
  Report Type: Spontaneous
  Country: US (occurrence: None)
  Receive Date: 20131001
  Receipt Date: 20131001
  Transmission Date: 20140711
  Serious: Yes (Death, Other)
  Sender: FDA-Public Use
  Company Number: 2013-US-001063

PATIENT
  Age: 61 Year
  Sex: Male

DRUGS (2)
  1. XYREM [Suspect]
     Indication: PRODUCT USED FOR UNKNOWN INDICATION
     Route: 048
     Dates: start: 20130911
  2. AMBIEN (ZOLPIDEM TARTRATE) [Concomitant]

REACTIONS (3)
  - Unresponsive to stimuli [None]
  - Epistaxis [None]
  - Somnolence [None]
